FAERS Safety Report 10101938 (Version 4)
Quarter: 2014Q2

REPORT INFORMATION
  Report Type: Spontaneous
  Country: JP (occurrence: JP)
  Receive Date: 20140424
  Receipt Date: 20140526
  Transmission Date: 20141212
  Serious: Yes (Death)
  Sender: FDA-Public Use
  Company Number: PHHY2014JP049562

PATIENT
  Age: 53 Year
  Sex: Male

DRUGS (2)
  1. GLIVEC [Suspect]
     Indication: OFF LABEL USE
     Dosage: 200 MG, DAILY
     Route: 048
     Dates: start: 20130524, end: 20130602
  2. ANTICOAGULANTS [Concomitant]

REACTIONS (1)
  - Cerebral haemorrhage [Fatal]
